FAERS Safety Report 8425057-2 (Version None)
Quarter: 2012Q2

REPORT INFORMATION
  Report Type: 
  Country: None (occurrence: None)
  Receive Date: 20120605
  Receipt Date: 20120605
  Transmission Date: 20120825
  Serious: Yes (Hospitalization)
  Sender: FDA-Public Use
  Company Number: None

PATIENT
  Sex: Female
  Weight: 57.6 kg

DRUGS (2)
  1. CARBOPLATIN [Suspect]
     Dosage: 620 MG
     Dates: end: 20120423
  2. TAXOL [Suspect]
     Dosage: 128 MG
     Dates: end: 20120423

REACTIONS (2)
  - URINARY TRACT INFECTION [None]
  - TREATMENT FAILURE [None]
